FAERS Safety Report 23641908 (Version 2)
Quarter: 2024Q2

REPORT INFORMATION
  Report Type: Spontaneous
  Country: US (occurrence: US)
  Receive Date: 20240318
  Receipt Date: 20240404
  Transmission Date: 20240716
  Serious: Yes (Other)
  Sender: FDA-Public Use
  Company Number: US-BRISTOL-MYERS SQUIBB COMPANY-2024-042214

PATIENT
  Age: 67 Year
  Sex: Female

DRUGS (1)
  1. LENALIDOMIDE [Suspect]
     Active Substance: LENALIDOMIDE
     Indication: Plasma cell myeloma
     Dosage: TAKE 1 CAPSULE BY MOUTH DAILY DAYS 1-21 OF EACH 28 DAY CYCLE. TAKE WHOLE W/ WATER AT THE SAME TIME.
     Route: 048

REACTIONS (2)
  - Nasopharyngitis [Recovered/Resolved]
  - Plasma cell myeloma [Recovering/Resolving]
